FAERS Safety Report 12211275 (Version 1)
Quarter: 2016Q1

REPORT INFORMATION
  Report Type: Spontaneous
  Country: US (occurrence: US)
  Receive Date: 20160325
  Receipt Date: 20160325
  Transmission Date: 20160526
  Serious: No
  Sender: FDA-Public Use
  Company Number: US-009507513-1603USA011393

PATIENT
  Age: 83 Year
  Sex: Male

DRUGS (1)
  1. TEMODAR [Suspect]
     Active Substance: TEMOZOLOMIDE
     Dosage: 3 CAPSULES/ONCE DAILY
     Route: 048

REACTIONS (3)
  - General physical health deterioration [Not Recovered/Not Resolved]
  - Hospice care [Not Recovered/Not Resolved]
  - Drug ineffective [Not Recovered/Not Resolved]

NARRATIVE: CASE EVENT DATE: 20160225
